FAERS Safety Report 4737026-4 (Version None)
Quarter: 2005Q3

REPORT INFORMATION
  Report Type: 
  Country: None (occurrence: None)
  Receive Date: 20050804
  Receipt Date: 20050727
  Transmission Date: 20060218
  Serious: Yes (Hospitalization)
  Sender: FDA-Public Use
  Company Number: 2005-130464-NL

PATIENT
  Age: 56 Year
  Sex: Male

DRUGS (2)
  1. MIRTAZAPINE [Suspect]
     Indication: DEPRESSION
     Dosage: DF/1350 MG ONCE
     Route: 048
     Dates: start: 20050331, end: 20050622
  2. MIRTAZAPINE [Suspect]
     Indication: DEPRESSION
     Dosage: DF/1350 MG ONCE
     Route: 048
     Dates: start: 20050628

REACTIONS (9)
  - DISTURBANCE IN ATTENTION [None]
  - EXCITABILITY [None]
  - HYPERKINESIA [None]
  - HYPERTENSION [None]
  - HYPERTONIA [None]
  - INTENTIONAL MISUSE [None]
  - OVERDOSE [None]
  - SUICIDE ATTEMPT [None]
  - TACHYCARDIA [None]
